FAERS Safety Report 7089892-8 (Version None)
Quarter: 2010Q4

REPORT INFORMATION
  Report Type: 
  Country: None (occurrence: None)
  Receive Date: 20101108
  Receipt Date: 20101025
  Transmission Date: 20110411
  Serious: Yes (Other)
  Sender: FDA-Public Use
  Company Number: FR-AMGEN-FRASP2010001104

PATIENT

DRUGS (4)
  1. PANITUMUMAB [Suspect]
     Indication: BREAST CANCER
     Dosage: 468
     Dates: start: 20100108, end: 20100108
  2. FARMORUBICINE                      /00699301/ [Suspect]
     Indication: BREAST CANCER
     Dosage: 155 MG, UNK
     Route: 042
     Dates: start: 20100108, end: 20100108
  3. ENDOXAN                            /00021101/ [Suspect]
     Indication: BREAST CANCER
     Dosage: 775 UNK, UNK
     Route: 042
     Dates: start: 20100108, end: 20100108
  4. FLUOROURACIL [Suspect]
     Indication: BREAST CANCER
     Dosage: 775 MG, UNK
     Route: 042

REACTIONS (3)
  - ECZEMA [None]
  - PRURITUS [None]
  - SUPERINFECTION [None]
